FAERS Safety Report 6635164-2 (Version None)
Quarter: 2010Q1

REPORT INFORMATION
  Report Type: 
  Country: None (occurrence: None)
  Receive Date: 20100315
  Receipt Date: 20100310
  Transmission Date: 20100710
  Serious: Yes (Death)
  Sender: FDA-Public Use
  Company Number: PHHY2010JP06492

PATIENT
  Sex: Male

DRUGS (9)
  1. TEGRETOL [Suspect]
     Indication: EPILEPSY
     Dosage: 400 MG/DAY
     Route: 048
     Dates: start: 20091031, end: 20100104
  2. TEGRETOL [Suspect]
     Dosage: 600 MG/DAY
     Route: 048
     Dates: start: 20100104, end: 20100104
  3. ADALAT [Concomitant]
     Indication: CARDIAC FAILURE CHRONIC
     Dosage: UNK
     Route: 048
  4. BLOPRESS [Concomitant]
     Indication: CARDIAC FAILURE CHRONIC
     Dosage: UNK
     Route: 048
  5. DIGOXIN [Concomitant]
     Indication: CARDIAC FAILURE CHRONIC
     Dosage: UNK
     Route: 048
  6. WARFARIN SODIUM [Concomitant]
     Indication: CEREBRAL INFARCTION
     Dosage: UNK
     Route: 048
  7. TAKEPRON [Concomitant]
     Dosage: UNK
     Route: 048
  8. FUROSEMIDE [Concomitant]
     Indication: CARDIAC FAILURE CHRONIC
     Route: 048
  9. ZANTAC [Concomitant]

REACTIONS (16)
  - BLOOD PRESSURE DECREASED [None]
  - DRUG ERUPTION [None]
  - ERYTHEMA [None]
  - GENERAL PHYSICAL HEALTH DETERIORATION [None]
  - HEPATIC FAILURE [None]
  - HYPOPHAGIA [None]
  - JAUNDICE [None]
  - LUNG DISORDER [None]
  - ORAL DISORDER [None]
  - ORAL MUCOSAL ERYTHEMA [None]
  - PNEUMONIA [None]
  - PYREXIA [None]
  - RENAL FAILURE [None]
  - RESUSCITATION [None]
  - STEVENS-JOHNSON SYNDROME [None]
  - VENTRICULAR FIBRILLATION [None]
